FAERS Safety Report 4333811-1 (Version None)
Quarter: 2004Q2

REPORT INFORMATION
  Report Type: 
  Country: None (occurrence: None)
  Receive Date: 20040402
  Receipt Date: 20040322
  Transmission Date: 20050107
  Serious: Yes (Other)
  Sender: FDA-Public Use
  Company Number: 2002116798US

PATIENT
  Age: 67 Year
  Sex: Female
  Weight: 49.9 kg

DRUGS (1)
  1. XANAX [Suspect]
     Indication: SLEEP DISORDER
     Dosage: 1 MG/DAY, ORAL
     Route: 048

REACTIONS (3)
  - MUSCLE TWITCHING [None]
  - TARDIVE DYSKINESIA [None]
  - WEIGHT DECREASED [None]
